FAERS Safety Report 9399436 (Version 2)
Quarter: 2013Q3

REPORT INFORMATION
  Report Type: Spontaneous
  Country: US (occurrence: None)
  Receive Date: 20130710
  Receipt Date: 20130827
  Transmission Date: 20140515
  Serious: Yes (Hospitalization)
  Sender: FDA-Public Use
  Company Number: ACO_37251_2013

PATIENT
  Age: 64 Year
  Sex: Female

DRUGS (4)
  1. AMPYRA [Suspect]
     Indication: PRODUCT USED FOR UNKNOWN INDICATION
     Route: 048
     Dates: start: 201006
  2. AMPYRA [Suspect]
     Route: 048
     Dates: start: 201006
  3. AVONEX (INTERFERON BETA-1A) [Concomitant]
  4. AMLODIPINE (AMLODIPINE BESILATE) [Concomitant]

REACTIONS (6)
  - Convulsion [None]
  - Depression [None]
  - Blood glucose fluctuation [None]
  - Blood calcium decreased [None]
  - Multiple sclerosis [None]
  - JC virus infection [None]
